FAERS Safety Report 18307131 (Version 2)
Quarter: 2021Q1

REPORT INFORMATION
  Report Type: Spontaneous
  Country: US (occurrence: US)
  Receive Date: 20200924
  Receipt Date: 20210211
  Transmission Date: 20210419
  Serious: Yes (Other)
  Sender: FDA-Public Use
  Company Number: US-SA-2020SA259408

PATIENT
  Age: 57 Year
  Sex: Female

DRUGS (1)
  1. ZANTAC [Suspect]
     Active Substance: RANITIDINE HYDROCHLORIDE
     Indication: HYPERCHLORHYDRIA
     Dosage: 75 MG, QD
     Dates: start: 200905, end: 201110

REACTIONS (1)
  - Renal cancer stage III [Unknown]

NARRATIVE: CASE EVENT DATE: 20110901
